FAERS Safety Report 4967336-7 (Version None)
Quarter: 2006Q2

REPORT INFORMATION
  Report Type: 
  Country: None (occurrence: None)
  Receive Date: 20060410
  Receipt Date: 20060329
  Transmission Date: 20061013
  Serious: Yes (Hospitalization)
  Sender: FDA-Public Use
  Company Number: FR-JNJFOC-20060307646

PATIENT
  Age: 90 Year
  Sex: Female

DRUGS (6)
  1. DAKTARIN [Suspect]
     Indication: ORAL FUNGAL INFECTION
     Route: 048
     Dates: start: 20051121, end: 20051207
  2. SINTROM [Interacting]
     Indication: ATRIAL FLUTTER
     Route: 048
     Dates: end: 20051207
  3. APROVEL [Concomitant]
     Indication: HYPERTENSIVE HEART DISEASE
     Dates: end: 20051207
  4. LASILIX [Concomitant]
     Indication: HYPERTENSIVE HEART DISEASE
     Dates: end: 20051207
  5. DAFALGAN [Concomitant]
     Dates: end: 20051207
  6. ELISOR [Concomitant]
     Indication: HYPERCHOLESTEROLAEMIA
     Dates: end: 20051207

REACTIONS (10)
  - BLOOD PRESSURE DIASTOLIC DECREASED [None]
  - DIFFICULTY IN WALKING [None]
  - DRUG INTERACTION [None]
  - EPISTAXIS [None]
  - HAEMATOMA [None]
  - HAEMOGLOBIN DECREASED [None]
  - PAIN IN EXTREMITY [None]
  - PLATELET COUNT DECREASED [None]
  - PROTHROMBIN TIME PROLONGED [None]
  - SUBCUTANEOUS HAEMATOMA [None]
